FAERS Safety Report 5592484-0 (Version None)
Quarter: 2008Q1

REPORT INFORMATION
  Report Type: 
  Country: None (occurrence: None)
  Receive Date: 20080115
  Receipt Date: 20080103
  Transmission Date: 20080703
  Serious: Yes (Other)
  Sender: FDA-Public Use
  Company Number: IE-PFIZER INC-2007104613

PATIENT
  Sex: Male
  Weight: 101.6 kg

DRUGS (2)
  1. CHANTIX [Suspect]
     Indication: SMOKING CESSATION THERAPY
     Route: 048
  2. ZOTON [Concomitant]
     Indication: PERIPHERAL VASCULAR DISORDER

REACTIONS (2)
  - DEPRESSION [None]
  - LETHARGY [None]
